FAERS Safety Report 23096806 (Version 2)
Quarter: 2023Q4

REPORT INFORMATION
  Report Type: Spontaneous
  Country: JP (occurrence: JP)
  Receive Date: 20231023
  Receipt Date: 20231106
  Transmission Date: 20240109
  Serious: Yes (Hospitalization, Other)
  Sender: FDA-Public Use
  Company Number: JP-Teva Takeda Yakuhin-2023-JP-002330J

PATIENT
  Age: 6 Year
  Sex: Female

DRUGS (3)
  1. CHLORDIAZEPOXIDE [Suspect]
     Active Substance: CHLORDIAZEPOXIDE
     Indication: Muscle tightness
     Route: 048
     Dates: start: 20230806, end: 20230822
  2. CHLORDIAZEPOXIDE [Suspect]
     Active Substance: CHLORDIAZEPOXIDE
     Route: 048
     Dates: start: 20230916, end: 20231013
  3. WARFARIN [Concomitant]
     Active Substance: WARFARIN
     Indication: Product used for unknown indication
     Route: 048

REACTIONS (20)
  - Arrhythmia [Recovered/Resolved]
  - Urinary retention [Recovered/Resolved]
  - Hyperpyrexia [Recovered/Resolved]
  - Depressed level of consciousness [Recovered/Resolved]
  - Toxicity to various agents [Recovered/Resolved]
  - Respiratory depression [Recovered/Resolved]
  - Seizure [Recovered/Resolved]
  - Dyskinesia [Unknown]
  - Hyperhidrosis [Unknown]
  - Flushing [Unknown]
  - Cold sweat [Unknown]
  - Respiration abnormal [Unknown]
  - Secretion discharge [Unknown]
  - Sputum increased [Unknown]
  - Oedema [Unknown]
  - Dizziness [Unknown]
  - Withdrawal syndrome [Unknown]
  - Product dispensing error [Unknown]
  - Incorrect dose administered [Unknown]
  - Product use in unapproved indication [Unknown]

NARRATIVE: CASE EVENT DATE: 20230801
